FAERS Safety Report 4932182-7 (Version None)
Quarter: 2006Q1

REPORT INFORMATION
  Report Type: 
  Country: None (occurrence: None)
  Receive Date: 20060228
  Receipt Date: 20060203
  Transmission Date: 20060701
  Serious: Yes (Hospitalization)
  Sender: FDA-Public Use
  Company Number: US200601004810

PATIENT
  Age: 50 Year
  Sex: Male

DRUGS (3)
  1. CYMBALTA [Suspect]
     Indication: ANXIETY
     Dosage: 30 MG, DAILY (1/D), ORAL
     Route: 048
     Dates: start: 20051209, end: 20051215
  2. IBUPROFEN [Concomitant]
  3. PROTONIX [Concomitant]

REACTIONS (4)
  - BLOOD GLUCOSE INCREASED [None]
  - GLOBAL AMNESIA [None]
  - HAEMOGLOBIN INCREASED [None]
  - SOMNOLENCE [None]
